FAERS Safety Report 4877239-4 (Version None)
Quarter: 2006Q1

REPORT INFORMATION
  Report Type: 
  Country: None (occurrence: None)
  Receive Date: 20060111
  Receipt Date: 20060104
  Transmission Date: 20060701
  Serious: Yes (Other)
  Sender: FDA-Public Use
  Company Number: US-JNJFOC-20051104541

PATIENT
  Sex: Female

DRUGS (4)
  1. REMICADE [Suspect]
     Indication: CROHN'S DISEASE
     Dosage: MAINTENANCE INFUSIONS FOR APPROXIMATELY 1-1/2 YEARS
     Route: 042
  2. PENTASA [Concomitant]
  3. AZATHIOPRINE [Concomitant]
  4. ENTOCORT [Concomitant]

REACTIONS (1)
  - SYSTEMIC LUPUS ERYTHEMATOSUS [None]
